FAERS Safety Report 7950733-5 (Version None)
Quarter: 2011Q4

REPORT INFORMATION
  Report Type: 
  Country: None (occurrence: None)
  Receive Date: 20111123
  Receipt Date: 20111107
  Transmission Date: 20120403
  Serious: Yes (Hospitalization)
  Sender: FDA-Public Use
  Company Number: UTC-011635

PATIENT
  Age: 60 Year
  Sex: Female
  Weight: 51.2 kg

DRUGS (6)
  1. REMODULIN [Suspect]
     Indication: PULMONARY ARTERIAL HYPERTENSION
     Dosage: 195.85 UG/KG (0.136 UG/KG, 1 IN 1 MIN) SUBCUTANEOUS
     Route: 058
     Dates: start: 20080905
  2. DIGOXIN [Concomitant]
  3. COUMADIN [Concomitant]
  4. REVATIO [Concomitant]
  5. DIURETICS [Concomitant]
  6. LETAIRIS [Concomitant]

REACTIONS (1)
  - HYPOXIA [None]
